FAERS Safety Report 11060639 (Version 4)
Quarter: 2015Q3

REPORT INFORMATION
  Report Type: Spontaneous
  Country: US (occurrence: US)
  Receive Date: 20150423
  Receipt Date: 20150929
  Transmission Date: 20151125
  Serious: Yes (Other)
  Sender: FDA-Public Use
  Company Number: US-ASTRAZENECA-2015SE37424

PATIENT
  Age: 986 Month
  Sex: Female
  Weight: 68 kg

DRUGS (5)
  1. SYMBICORT [Suspect]
     Active Substance: BUDESONIDE\FORMOTEROL FUMARATE DIHYDRATE
     Indication: ASTHMA
     Dosage: 80/4.5 UG, 3 PUFFS DAILY
     Route: 055
  2. ARMOURTHYROID [Concomitant]
     Indication: THYROID DISORDER
  3. SYMBICORT [Suspect]
     Active Substance: BUDESONIDE\FORMOTEROL FUMARATE DIHYDRATE
     Indication: ASTHMA
     Dosage: 160/4.5 UG, 2 PUFFS TWICE DAILY
     Route: 055
     Dates: start: 201307
  4. SYMBICORT [Suspect]
     Active Substance: BUDESONIDE\FORMOTEROL FUMARATE DIHYDRATE
     Indication: ASTHMA
     Dosage: 80/4.5 UG, 1 PUFFS TWICE DAILY
     Route: 055
     Dates: start: 201412
  5. SYMBICORT [Suspect]
     Active Substance: BUDESONIDE\FORMOTEROL FUMARATE DIHYDRATE
     Indication: ASTHMA
     Dosage: 80/4.5 UG, 1 PUFFS TWICE DAILY
     Route: 055
     Dates: start: 201503

REACTIONS (5)
  - Visual impairment [Unknown]
  - Cataract [Unknown]
  - Drug dose omission [Unknown]
  - Dyspnoea exertional [Unknown]
  - Intentional product misuse [Unknown]

NARRATIVE: CASE EVENT DATE: 201412
